FAERS Safety Report 4325303-0 (Version None)
Quarter: 2004Q1

REPORT INFORMATION
  Report Type: 
  Country: None (occurrence: None)
  Receive Date: 20040323
  Receipt Date: 20040316
  Transmission Date: 20041129
  Serious: Yes (Hospitalization)
  Sender: FDA-Public Use
  Company Number: 2004202270ES

PATIENT
  Age: 72 Year
  Sex: Female

DRUGS (3)
  1. DOXORUBICIN HCL [Suspect]
     Indication: BREAST CANCER
     Dosage: 40 MG/M2, CYCLIC; IV
     Route: 042
     Dates: start: 20031201, end: 20040210
  2. TAXOL [Suspect]
     Indication: BREAST CANCER
     Dosage: 150 MG/M2, CYCLE; IV
     Route: 042
     Dates: start: 20031201, end: 20040210
  3. GEMCITABINE (GEMCITABINE) [Suspect]
     Indication: BREAST CANCER
     Dosage: 2000 MG/M2, CYCLIC; IV
     Route: 042
     Dates: start: 20031201, end: 20040210

REACTIONS (4)
  - ANAEMIA [None]
  - FEBRILE NEUTROPENIA [None]
  - PNEUMONIA [None]
  - THROMBOCYTOPENIA [None]
